FAERS Safety Report 16322831 (Version 2)
Quarter: 2019Q2

REPORT INFORMATION
  Report Type: Report from Study
  Country: None (occurrence: US)
  Receive Date: 20190516
  Receipt Date: 20190524
  Transmission Date: 20190711
  Serious: Yes (Other)
  Sender: FDA-Public Use
  Company Number: US-ABBVIE-19K-163-2780034-00

PATIENT
  Age: 36 Year
  Sex: Female
  Weight: 64.92 kg

DRUGS (6)
  1. VITAMIN D [Concomitant]
     Active Substance: VITAMIN D NOS
     Indication: VITAMIN SUPPLEMENTATION
  2. HUMIRA [Suspect]
     Active Substance: ADALIMUMAB
     Indication: COLITIS ULCERATIVE
     Dosage: CITRATE FREE LOADING DOSE
     Route: 058
     Dates: start: 20190510, end: 20190510
  3. HUMIRA [Suspect]
     Active Substance: ADALIMUMAB
     Dosage: CITRATE FREE
     Route: 058
     Dates: start: 201905
  4. DESIPRAMINE [Concomitant]
     Active Substance: DESIPRAMINE
     Indication: COLITIS ULCERATIVE
  5. OMEGA 3 [Concomitant]
     Active Substance: OMEGA-3 FATTY ACIDS
     Indication: SUPPLEMENTATION THERAPY
  6. VITAMIN B COMPLEX [Concomitant]
     Active Substance: CYANOCOBALAMIN\DEXPANTHENOL\NIACINAMIDE\PYRIDOXINE HYDROCHLORIDE\RIBOFLAVIN 5^-PHOSPHATE SODIUM\THIAMINE HYDROCHLORIDE\VITAMIN B COMPLEX
     Indication: VITAMIN SUPPLEMENTATION

REACTIONS (9)
  - Dizziness [Unknown]
  - Wrong technique in product usage process [Recovered/Resolved]
  - Injection site pain [Recovered/Resolved]
  - Seizure [Recovered/Resolved]
  - Injection site erythema [Recovered/Resolved]
  - Pain in extremity [Unknown]
  - Device issue [Recovered/Resolved]
  - Paraesthesia [Recovered/Resolved]
  - Incorrect dose administered [Recovered/Resolved]

NARRATIVE: CASE EVENT DATE: 20190510
